FAERS Safety Report 15567164 (Version 1)
Quarter: 2018Q4

REPORT INFORMATION
  Report Type: Spontaneous
  Country: HU (occurrence: HU)
  Receive Date: 20181030
  Receipt Date: 20181030
  Transmission Date: 20190205
  Serious: Yes (Other)
  Sender: FDA-Public Use
  Company Number: HU-TEVA-2018-HU-969259

PATIENT
  Age: 69 Year
  Sex: Female

DRUGS (6)
  1. TENSIOMIN [Concomitant]
     Active Substance: CAPTOPRIL
     Indication: BLOOD PRESSURE INCREASED
     Route: 065
  2. NOOTROPIL [Concomitant]
     Active Substance: PIRACETAM
     Indication: CEREBROVASCULAR DISORDER
     Route: 048
  3. COVIOGAL [Concomitant]
     Active Substance: BISOPROLOL FUMARATE
     Dosage: 5 MILLIGRAM DAILY;
     Route: 048
  4. NITROMINT [Concomitant]
     Active Substance: NITROGLYCERIN
     Dosage: 2.6 MILLIGRAM DAILY;
     Route: 048
  5. NOOTROPIL [Concomitant]
     Active Substance: PIRACETAM
     Indication: CEREBROVASCULAR DISORDER
     Route: 041
  6. VALSOTENS [Suspect]
     Active Substance: VALSARTAN
     Indication: HYPERTENSION
     Dosage: 160MG OR 320MG EVENINGS
     Route: 048
     Dates: start: 201102

REACTIONS (4)
  - Pruritus [Recovered/Resolved]
  - Pituitary tumour recurrent [Not Recovered/Not Resolved]
  - Melanocytic naevus [Recovered/Resolved with Sequelae]
  - Drug ineffective [Unknown]

NARRATIVE: CASE EVENT DATE: 2011
